FAERS Safety Report 9287092 (Version 2)
Quarter: 2013Q4

REPORT INFORMATION
  Report Type: Spontaneous
  Country: US (occurrence: US)
  Receive Date: 20130513
  Receipt Date: 20131219
  Transmission Date: 20140711
  Serious: Yes (Hospitalization)
  Sender: FDA-Public Use
  Company Number: US-B.I. PHARMACEUTICALS,INC./RIDGEFIELD-2013-BI-13269BP

PATIENT
  Age: 75 Year
  Sex: Female
  Weight: 95.25 kg

DRUGS (25)
  1. PRADAXA [Suspect]
     Indication: ANTICOAGULANT THERAPY
     Dates: start: 20110617, end: 20110703
  2. PRADAXA [Suspect]
     Indication: ATRIAL FIBRILLATION
  3. PRADAXA [Suspect]
     Indication: CEREBROVASCULAR ACCIDENT
  4. ASPIRIN [Concomitant]
     Indication: ATRIAL FIBRILLATION
     Dates: end: 20110703
  5. ASPIRIN [Concomitant]
     Indication: CEREBROVASCULAR ACCIDENT
  6. DULCOLAX [Concomitant]
     Indication: CONSTIPATION
     Dosage: 5 MG
     Route: 048
  7. MAXIPIME [Concomitant]
     Dosage: 1 G
     Route: 042
  8. CINACALCET [Concomitant]
     Dosage: 30 MG
     Route: 048
  9. VITAMIN D [Concomitant]
     Route: 048
  10. LACTULOSE [Concomitant]
     Dosage: 30 ML
     Route: 048
  11. PROAMATINE [Concomitant]
     Dosage: 55 MG
     Route: 048
  12. PROTONIX [Concomitant]
     Route: 042
  13. ADVAIR DISCUS [Concomitant]
     Route: 055
  14. THERAGRAN-M [Concomitant]
     Route: 048
  15. MIRALAX [Concomitant]
     Route: 048
  16. RENAGEL [Concomitant]
     Dosage: 2400 MG
     Route: 048
  17. MYLANTA [Concomitant]
     Indication: DYSPEPSIA
     Dosage: 45 ML
     Route: 048
  18. NEPHROVITE [Concomitant]
     Route: 048
  19. PHENERGAN [Concomitant]
     Indication: NAUSEA
     Dosage: 25 MG
     Route: 042
  20. PHENERGAN [Concomitant]
     Indication: VOMITING
  21. SYNTHROID [Concomitant]
     Dosage: 50 MCG
     Route: 048
  22. MORPHINE [Concomitant]
     Indication: PAIN
     Dosage: 24 MG
  23. ZOFRAN [Concomitant]
     Indication: NAUSEA
     Dosage: 24 MG
     Route: 042
  24. ZOFRAN [Concomitant]
     Indication: VOMITING
  25. DESTIN [Concomitant]
     Route: 061

REACTIONS (5)
  - Gastrointestinal haemorrhage [Unknown]
  - Anaemia [Unknown]
  - Clostridium difficile infection [Unknown]
  - Oesophageal candidiasis [Unknown]
  - Coagulopathy [Unknown]
